FAERS Safety Report 9009206 (Version 1)
Quarter: 2013Q1

REPORT INFORMATION
  Report Type: Spontaneous
  Country: US (occurrence: US)
  Receive Date: 20130111
  Receipt Date: 20130111
  Transmission Date: 20140127
  Serious: No
  Sender: FDA-Public Use
  Company Number: US-ASTRAZENECA-2013SE01570

PATIENT
  Sex: Female

DRUGS (1)
  1. SYMBICORT PMDI [Suspect]
     Indication: PNEUMONIA
     Dosage: UNKNOWN
     Route: 055
     Dates: start: 20130103

REACTIONS (4)
  - Chest discomfort [Unknown]
  - Parkinson^s disease [Unknown]
  - Rheumatoid arthritis [Unknown]
  - Cough [Unknown]
